FAERS Safety Report 4448925-5 (Version None)
Quarter: 2004Q3

REPORT INFORMATION
  Report Type: 
  Country: None (occurrence: None)
  Receive Date: 20040909
  Receipt Date: 20040831
  Transmission Date: 20050211
  Serious: Yes (Hospitalization, Other)
  Sender: FDA-Public Use
  Company Number: HQWYE776802SEP04

PATIENT
  Age: 70 Year
  Sex: Female

DRUGS (10)
  1. RAPAMUNE [Suspect]
     Indication: PROPHYLAXIS AGAINST TRANSPLANT REJECTION
     Dosage: 4 MG 1X PER 1 DAY
     Dates: start: 20040623
  2. PREDNISONE [Suspect]
  3. LASIX [Concomitant]
  4. LABETALOL HCL [Concomitant]
  5. ZOCOR [Concomitant]
  6. SEPTRA [Concomitant]
  7. NYSTATIN [Concomitant]
  8. LOTREL [Concomitant]
  9. GANCICLOVIR SODIUM [Concomitant]
  10. CYCLOSPORINE [Concomitant]

REACTIONS (6)
  - BACTERIA URINE IDENTIFIED [None]
  - BLOOD CREATININE INCREASED [None]
  - BLOOD UREA INCREASED [None]
  - BODY TEMPERATURE DECREASED [None]
  - HYPERGLYCAEMIA [None]
  - IMMUNOSUPPRESSANT DRUG LEVEL INCREASED [None]
